FAERS Safety Report 8001639-7 (Version None)
Quarter: 2011Q4

REPORT INFORMATION
  Report Type: 
  Country: None (occurrence: None)
  Receive Date: 20111222
  Receipt Date: 20111215
  Transmission Date: 20120403
  Serious: Yes (Other)
  Sender: FDA-Public Use
  Company Number: US-SANOFI-AVENTIS-2011SA082573

PATIENT
  Age: 75 Year
  Sex: Female

DRUGS (2)
  1. ZOLPIDEM TARTRATE [Suspect]
     Indication: SLEEP DISORDER
     Route: 048
  2. AMBIEN [Suspect]
     Indication: SLEEP DISORDER
     Route: 048

REACTIONS (2)
  - DRUG INEFFECTIVE [None]
  - UPPER LIMB FRACTURE [None]
